FAERS Safety Report 5729367-9 (Version None)
Quarter: 2008Q2

REPORT INFORMATION
  Report Type: 
  Country: None (occurrence: None)
  Receive Date: 20080506
  Receipt Date: 20080428
  Transmission Date: 20081010
  Serious: Yes (Hospitalization, Other)
  Sender: FDA-Public Use
  Company Number: CA-ABBOTT-08P-028-0449360-00

PATIENT
  Sex: Female
  Weight: 70 kg

DRUGS (2)
  1. MERIDIA [Suspect]
     Indication: WEIGHT DECREASED
     Route: 048
     Dates: start: 20060901, end: 20080405
  2. ORLISTAT [Concomitant]
     Indication: WEIGHT DECREASED
     Route: 048
     Dates: start: 20060901, end: 20080405

REACTIONS (7)
  - CEREBRAL ARTERY EMBOLISM [None]
  - COGNITIVE DISORDER [None]
  - DEHYDRATION [None]
  - HEADACHE [None]
  - TINNITUS [None]
  - UNEVALUABLE EVENT [None]
  - VOMITING [None]
